FAERS Safety Report 17967368 (Version 1)
Quarter: 2020Q3

REPORT INFORMATION
  Report Type: Spontaneous
  Country: GB (occurrence: GB)
  Receive Date: 20200701
  Receipt Date: 20200701
  Transmission Date: 20201103
  Serious: Yes (Hospitalization)
  Sender: FDA-Public Use
  Company Number: GB-TEVA-2020-GB-1792213

PATIENT
  Age: 52 Year
  Sex: Female

DRUGS (2)
  1. PHENOXYMETHYLPENICILLIN [Suspect]
     Active Substance: PENICILLIN V
     Indication: TONSILLITIS
     Dosage: 250 MG
  2. MORPHINE [Suspect]
     Active Substance: MORPHINE
     Dosage: 10MG/5ML

REACTIONS (4)
  - Rash [Unknown]
  - Stevens-Johnson syndrome [Unknown]
  - Mucosal disorder [Unknown]
  - Oropharyngeal pain [Unknown]
